FAERS Safety Report 17010627 (Version 1)
Quarter: 2019Q4

REPORT INFORMATION
  Report Type: Spontaneous
  Country: US (occurrence: US)
  Receive Date: 20190930
  Receipt Date: 20190930
  Transmission Date: 20200122
  Serious: Yes (Hospitalization)
  Sender: FDA-Public Use
  Company Number: None

PATIENT
  Age: 72 Year
  Sex: Male
  Weight: 113.4 kg

DRUGS (1)
  1. WARFARIN [Suspect]
     Active Substance: WARFARIN
     Indication: ATRIAL FIBRILLATION
     Dosage: ?          OTHER FREQUENCY:HS;??
     Route: 048

REACTIONS (8)
  - Decreased appetite [None]
  - Anaemia [None]
  - Weight decreased [None]
  - International normalised ratio increased [None]
  - Chest pain [None]
  - Haemorrhage [None]
  - Gastric haemorrhage [None]
  - Dyspnoea exertional [None]

NARRATIVE: CASE EVENT DATE: 20190730
